FAERS Safety Report 9323709 (Version 2)
Quarter: 2013Q2

REPORT INFORMATION
  Report Type: Spontaneous
  Country: GB (occurrence: GB)
  Receive Date: 20130603
  Receipt Date: 20130613
  Transmission Date: 20140414
  Serious: Yes (Death, Hospitalization, Other)
  Sender: FDA-Public Use
  Company Number: PHFR2013GB002853

PATIENT
  Sex: Female

DRUGS (1)
  1. CLOZARIL [Suspect]
     Indication: SCHIZOPHRENIA
     Dosage: UNK
     Route: 048
     Dates: start: 20020305, end: 20130511

REACTIONS (7)
  - Joint dislocation [Fatal]
  - Mobility decreased [Fatal]
  - Vomiting [Fatal]
  - Pneumonia [Fatal]
  - Small intestinal obstruction [Fatal]
  - Hip fracture [Unknown]
  - Sedation [Unknown]
